FAERS Safety Report 8608452-8 (Version None)
Quarter: 2012Q3

REPORT INFORMATION
  Report Type: 
  Country: None (occurrence: None)
  Receive Date: 20120821
  Receipt Date: 20120814
  Transmission Date: 20120928
  Serious: Yes (Life-Threatening, Hospitalization)
  Sender: FDA-Public Use
  Company Number: US-PFIZER INC-2012181413

PATIENT
  Age: 44 Year
  Sex: Female

DRUGS (8)
  1. DEXAMETHASONE [Concomitant]
     Dosage: (4 MG,1 IN 6 HR)
     Route: 042
  2. DIPHENHYDRAMINE [Concomitant]
     Dosage: 25 MG, (EVERY 6 HOURS)
     Route: 042
  3. EPINEPHRINE [Suspect]
     Indication: ANGIOEDEMA
     Dosage: 0.3 MG, INITIALLY
     Route: 058
  4. METHYLPREDNISOLONE SODIUM SUCCINATE [Concomitant]
     Dosage: 125 MG, 2X/DAY
     Route: 042
  5. DEXAMETHASONE [Concomitant]
     Dosage: 4 MG, 2X/DAY
     Route: 042
  6. ESCITALOPRAM [Concomitant]
     Dosage: 20 MG, 1X/DAY
  7. EPINEPHRINE [Suspect]
     Dosage: 3 MG, SINGLE
     Route: 058
  8. LISINOPRIL [Concomitant]
     Dosage: HAD BEEN TAKEN FOR 1 YEAR (10 MG, 1 IN 1 D)

REACTIONS (6)
  - ACCIDENTAL OVERDOSE [None]
  - HYPOTENSION [None]
  - TACHYCARDIA [None]
  - MEDICATION ERROR [None]
  - STRESS CARDIOMYOPATHY [None]
  - PULMONARY OEDEMA [None]
